FAERS Safety Report 25417245 (Version 1)
Quarter: 2025Q2

REPORT INFORMATION
  Report Type: Spontaneous
  Country: ES (occurrence: ES)
  Receive Date: 20250610
  Receipt Date: 20250610
  Transmission Date: 20250717
  Serious: Yes (Other)
  Sender: BAXTER
  Company Number: None

PATIENT
  Age: 44 Year
  Sex: Female

DRUGS (5)
  1. SEVOFLURANE [Interacting]
     Active Substance: SEVOFLURANE
     Route: 042
     Dates: start: 202504, end: 202504
  2. ROCURONIUM BROMIDE [Interacting]
     Active Substance: ROCURONIUM BROMIDE
     Route: 042
     Dates: start: 202504, end: 202504
  3. REMIFENTANIL [Interacting]
     Active Substance: REMIFENTANIL
     Route: 042
     Dates: start: 202504, end: 202504
  4. FENTANYL [Interacting]
     Active Substance: FENTANYL
     Route: 042
     Dates: start: 202504, end: 202504
  5. MAGNESIUM SULFATE HEPTAHYDRATE [Interacting]
     Active Substance: MAGNESIUM SULFATE HEPTAHYDRATE
     Route: 042
     Dates: start: 202504, end: 202504

REACTIONS (2)
  - Bronchospasm [Recovered/Resolved]
  - Medication error [Recovered/Resolved]
